FAERS Safety Report 4947836-6 (Version None)
Quarter: 2006Q1

REPORT INFORMATION
  Report Type: 
  Country: None (occurrence: None)
  Receive Date: 20060310
  Receipt Date: 20060306
  Transmission Date: 20060701
  Serious: Yes (Other)
  Sender: FDA-Public Use
  Company Number: 200511235BVD

PATIENT

DRUGS (1)
  1. AVELOX [Suspect]

REACTIONS (2)
  - MULTIMORBIDITY [None]
  - TOXIC EPIDERMAL NECROLYSIS [None]
